FAERS Safety Report 9457301 (Version 1)
Quarter: 2013Q3

REPORT INFORMATION
  Report Type: Report from Study
  Country: US (occurrence: US)
  Receive Date: 20130814
  Receipt Date: 20130814
  Transmission Date: 20140515
  Serious: Yes (Hospitalization)
  Sender: FDA-Public Use
  Company Number: PHHO2013US010420

PATIENT
  Age: 73 Year
  Sex: Female

DRUGS (2)
  1. SOM230 [Suspect]
     Indication: MALIGNANT MELANOMA
     Dosage: 60 MG, QD
     Route: 030
     Dates: start: 20130415
  2. AFINITOR [Suspect]
     Indication: MALIGNANT MELANOMA
     Dosage: 10 MG, QD
     Route: 048
     Dates: start: 20130415

REACTIONS (1)
  - Renal failure [Unknown]
